FAERS Safety Report 10453494 (Version 1)
Quarter: 2014Q3

REPORT INFORMATION
  Report Type: Report from Study
  Country: BR (occurrence: BR)
  Receive Date: 20140915
  Receipt Date: 20140915
  Transmission Date: 20150326
  Serious: Yes (Other)
  Sender: FDA-Public Use
  Company Number: PHHY2014BR119205

PATIENT
  Sex: Female

DRUGS (2)
  1. LESCOL XL [Suspect]
     Active Substance: FLUVASTATIN SODIUM
  2. ASPIRIN. [Suspect]
     Active Substance: ASPIRIN
     Indication: BLOOD DISORDER

REACTIONS (5)
  - Hypertension [Unknown]
  - Cardiac disorder [Unknown]
  - Pneumonia [Unknown]
  - Nasopharyngitis [Not Recovered/Not Resolved]
  - Hypersensitivity [Unknown]
